FAERS Safety Report 18544973 (Version 1)
Quarter: 2020Q4

REPORT INFORMATION
  Report Type: Spontaneous
  Country: JP (occurrence: JP)
  Receive Date: 20201125
  Receipt Date: 20201125
  Transmission Date: 20210114
  Serious: Yes (Hospitalization)
  Sender: FDA-Public Use
  Company Number: JP-MYLANLABS-2020M1096267

PATIENT
  Age: 41 Year
  Sex: Female

DRUGS (17)
  1. PROGESTERONE. [Suspect]
     Active Substance: PROGESTERONE
     Indication: SUPPLEMENTATION THERAPY
     Route: 067
  2. OXYTOCIN. [Suspect]
     Active Substance: OXYTOCIN
     Indication: LABOUR PAIN
     Route: 065
  3. PREDNISOLONE. [Suspect]
     Active Substance: PREDNISOLONE
     Dosage: 15 MILLIGRAM, QD
     Route: 065
  4. PREDNISOLONE. [Suspect]
     Active Substance: PREDNISOLONE
     Dosage: 7.5 MILLIGRAM, QD, SLE WELL CONTROLLED ON THIS DOSE ALONG WITH HYDROXYCHLOROQUINE
     Route: 065
  5. HYDROXYCHLOROQUINE [Suspect]
     Active Substance: HYDROXYCHLOROQUINE
     Indication: SYSTEMIC LUPUS ERYTHEMATOSUS
     Route: 065
  6. TACROLIMUS. [Suspect]
     Active Substance: TACROLIMUS
     Indication: SYSTEMIC LUPUS ERYTHEMATOSUS
     Route: 065
  7. ESTRADIOL. [Suspect]
     Active Substance: ESTRADIOL
     Indication: SUPPLEMENTATION THERAPY
     Dosage: 1.44 MILLIGRAM, QOD
     Route: 062
  8. DYDROGESTERONE [Suspect]
     Active Substance: DYDROGESTERONE
     Indication: SUPPLEMENTATION THERAPY
     Route: 048
  9. ESTRADIOL. [Suspect]
     Active Substance: ESTRADIOL
     Indication: SUPPLEMENTATION THERAPY
     Dosage: 1.5 MILLIGRAM, QD, DURING CYCLE DATE 2-4
     Route: 048
  10. ESTRADIOL. [Suspect]
     Active Substance: ESTRADIOL
     Dosage: 3 MILLIGRAM, QD, DURING CYCLE DATE 5-16
     Route: 048
  11. PREDNISOLONE. [Suspect]
     Active Substance: PREDNISOLONE
     Dosage: 10 MILLIGRAM, QD
     Route: 065
  12. PREDNISOLONE. [Suspect]
     Active Substance: PREDNISOLONE
     Dosage: 7 MILLIGRAM, QD
     Route: 065
  13. PREDNISOLONE. [Suspect]
     Active Substance: PREDNISOLONE
     Dosage: 7 MILLIGRAM, QD, DECREASED FROM 15MG TO 7MG DAILY
     Route: 065
  14. ESTRADIOL. [Suspect]
     Active Substance: ESTRADIOL
     Dosage: 2.16 MILLIGRAM, QOD
     Route: 062
  15. ESTRADIOL. [Suspect]
     Active Substance: ESTRADIOL
     Dosage: 2.88 MILLIGRAM, QD
     Route: 062
  16. PREDNISOLONE. [Suspect]
     Active Substance: PREDNISOLONE
     Indication: SYSTEMIC LUPUS ERYTHEMATOSUS
     Dosage: 7.5 MILLIGRAM, QD
     Route: 065
  17. PREDNISOLONE. [Suspect]
     Active Substance: PREDNISOLONE
     Dosage: 20 MILLIGRAM, QD
     Route: 065

REACTIONS (6)
  - Exposure during pregnancy [Recovered/Resolved]
  - Uterine disorder [Recovered/Resolved]
  - Uterine haemorrhage [Recovered/Resolved]
  - Infarction [Recovered/Resolved]
  - Placenta accreta [Recovered/Resolved]
  - Pelvic infection [Recovered/Resolved]
